FAERS Safety Report 5228627-8 (Version None)
Quarter: 2007Q1

REPORT INFORMATION
  Report Type: 
  Country: None (occurrence: None)
  Receive Date: 20070131
  Receipt Date: 20070115
  Transmission Date: 20070707
  Serious: Yes (Life-Threatening, Hospitalization)
  Sender: FDA-Public Use
  Company Number: DSA_29288_2007

PATIENT
  Age: 50 Year
  Sex: Female

DRUGS (3)
  1. LORAZEPAM [Suspect]
     Dosage: 60 MG ONCE
     Dates: start: 20011201, end: 20011201
  2. EFFEXOR XR [Suspect]
     Dosage: 1875 MG ONCE PO
     Route: 048
     Dates: start: 20011201, end: 20011201
  3. ALCOHOL [Suspect]
     Dates: start: 20011201, end: 20011201

REACTIONS (4)
  - ALCOHOL POISONING [None]
  - HYPOTONIA [None]
  - MYDRIASIS [None]
  - OVERDOSE [None]
